FAERS Safety Report 18266657 (Version 1)
Quarter: 2020Q3

REPORT INFORMATION
  Report Type: Spontaneous
  Country: US (occurrence: US)
  Receive Date: 20200914
  Receipt Date: 20200914
  Transmission Date: 20201103
  Serious: No
  Sender: FDA-Public Use
  Company Number: None

PATIENT
  Age: 55 Year
  Sex: Male
  Weight: 75.6 kg

DRUGS (1)
  1. CREST PRO?HEALTH ALL?AROUND PROTECTION [Suspect]
     Active Substance: STANNOUS FLUORIDE
     Indication: ORAL DISORDER
     Dates: start: 20200818, end: 20200818

REACTIONS (1)
  - Hypogeusia [None]

NARRATIVE: CASE EVENT DATE: 20200818
